FAERS Safety Report 21294085 (Version 3)
Quarter: 2022Q4

REPORT INFORMATION
  Report Type: Spontaneous
  Country: US (occurrence: US)
  Receive Date: 20220905
  Receipt Date: 20221019
  Transmission Date: 20230113
  Serious: Yes (Hospitalization)
  Sender: FDA-Public Use
  Company Number: US-THERATECHNOLOGIES INC.-2022-THE-TES-000250

PATIENT

DRUGS (2)
  1. EGRIFTA SV [Suspect]
     Active Substance: TESAMORELIN ACETATE
     Indication: HIV lipodystrophy
     Dosage: 1.4 MG, QD
     Route: 058
     Dates: start: 202204
  2. DOVATO [Concomitant]
     Active Substance: DOLUTEGRAVIR SODIUM\LAMIVUDINE
     Indication: HIV infection
     Dosage: UNK, QD
     Route: 048

REACTIONS (2)
  - Obstruction gastric [Recovering/Resolving]
  - Abdominal adhesions [Recovering/Resolving]
